FAERS Safety Report 9312177 (Version 1)
Quarter: 2013Q2

REPORT INFORMATION
  Report Type: Spontaneous
  Country: FR (occurrence: FR)
  Receive Date: 20130528
  Receipt Date: 20130528
  Transmission Date: 20140414
  Serious: Yes (Hospitalization)
  Sender: FDA-Public Use
  Company Number: FR-PFIZER INC-2013160979

PATIENT
  Age: 29 Year
  Sex: Female
  Weight: 55 kg

DRUGS (15)
  1. ATARAX [Suspect]
     Dosage: 50 MG, DAILY
     Route: 048
     Dates: start: 20130219, end: 2013
  2. ATARAX [Suspect]
     Dosage: 80 MG, DAILY
     Route: 048
     Dates: start: 2013, end: 20130308
  3. FLUCONAZOLE [Suspect]
     Dosage: 50 MG, 3X/DAY
     Route: 048
     Dates: start: 20130214, end: 20130214
  4. CETIRIZINE [Suspect]
     Dosage: 10 MG, 1X/DAY
     Route: 048
     Dates: start: 20130214, end: 20130219
  5. ECONAZOLE [Suspect]
     Indication: PRURITUS
     Dosage: 150 MG, 1X/DAY
     Route: 067
     Dates: start: 20130211, end: 20130211
  6. ECONAZOLE [Suspect]
     Dosage: UNK
     Route: 061
     Dates: start: 20130211, end: 20130211
  7. MINESSE [Concomitant]
     Dosage: 60 MCG/15 MCG
     Dates: start: 2011
  8. POLARAMINE [Concomitant]
     Dosage: 2MG-4MG, DAILY
     Route: 048
     Dates: start: 20130214, end: 20130219
  9. BETNEVAL [Concomitant]
     Dosage: 0.1%, LOCAL
     Dates: start: 20130214, end: 20130219
  10. DEXERYL [Concomitant]
     Dosage: UNK
     Dates: start: 20130214, end: 20130219
  11. FUCIDINE [Concomitant]
     Dosage: UNK
     Dates: start: 20130219, end: 20130225
  12. DAFALGAN [Concomitant]
     Dosage: UNK
     Dates: start: 20130223, end: 20130225
  13. POLYDEXA [Concomitant]
     Dosage: UNK
     Route: 001
     Dates: start: 20130223, end: 20130225
  14. AERIUS [Concomitant]
     Dosage: 5 MG, DAILLY
     Dates: start: 20130226, end: 20130308
  15. DIPROSONE [Concomitant]
     Dosage: 0.05%, APPLICATION
     Dates: start: 20130226, end: 20130305

REACTIONS (3)
  - Toxic skin eruption [Unknown]
  - Pruritus [Unknown]
  - Eosinophilia [Unknown]
